FAERS Safety Report 5289059-X (Version None)
Quarter: 2007Q2

REPORT INFORMATION
  Report Type: 
  Country: None (occurrence: None)
  Receive Date: 20070406
  Receipt Date: 20070328
  Transmission Date: 20071010
  Serious: Yes (Disabling)
  Sender: FDA-Public Use
  Company Number: GB-PFIZER INC-2007025811

PATIENT
  Age: 70 Year
  Weight: 70 kg

DRUGS (6)
  1. AMLODIPINE [Suspect]
     Indication: HYPERTENSION
     Route: 048
     Dates: start: 20061015, end: 20070123
  2. BENDROFLUMETHIAZIDE [Concomitant]
     Dosage: DAILY DOSE:2.5MG-FREQ:DAILY
     Route: 048
  3. DOXAZOSIN MESYLATE [Concomitant]
     Route: 048
  4. EPANUTIN [Concomitant]
     Route: 048
  5. PHENOBARBITAL TAB [Concomitant]
     Route: 048
  6. SIMVASTATIN [Concomitant]
     Dosage: DAILY DOSE:20MG-FREQ:DAILY
     Route: 048

REACTIONS (2)
  - CONDITION AGGRAVATED [None]
  - EPILEPSY [None]
